FAERS Safety Report 7535895-6 (Version None)
Quarter: 2011Q2

REPORT INFORMATION
  Report Type: 
  Country: None (occurrence: None)
  Receive Date: 20110602
  Receipt Date: 20070215
  Transmission Date: 20111010
  Serious: Yes (Hospitalization)
  Sender: FDA-Public Use
  Company Number: US-SEPTODONT-200700040

PATIENT
  Age: 59 Year
  Sex: Female

DRUGS (1)
  1. MEPIVACAINE HCL [Suspect]
     Indication: LOCAL ANAESTHESIA
     Dosage: DENTAL
     Route: 004
     Dates: start: 20070215

REACTIONS (5)
  - EAR PRURITUS [None]
  - LARYNGEAL DISORDER [None]
  - ERYTHEMA [None]
  - ANGIOEDEMA [None]
  - DYSPHAGIA [None]
